FAERS Safety Report 24869971 (Version 1)
Quarter: 2025Q1

REPORT INFORMATION
  Report Type: Spontaneous
  Country: US (occurrence: None)
  Receive Date: 20250117
  Receipt Date: 20250117
  Transmission Date: 20250409
  Serious: No
  Sender: FDA-CTU
  Company Number: None

PATIENT
  Age: 65 Year
  Sex: Male
  Weight: 86.18 kg

DRUGS (1)
  1. SEMAGLUTIDE [Suspect]
     Active Substance: SEMAGLUTIDE

REACTIONS (2)
  - Dyspepsia [None]
  - Therapy change [None]
